FAERS Safety Report 19937795 (Version 3)
Quarter: 2022Q1

REPORT INFORMATION
  Report Type: Report from Study
  Country: GB (occurrence: GB)
  Receive Date: 20211011
  Receipt Date: 20220225
  Transmission Date: 20220423
  Serious: Yes (Death, Other)
  Sender: FDA-Public Use
  Company Number: GB-ABBVIE-21K-167-4111628-00

PATIENT
  Age: 13 Year
  Sex: Male
  Weight: 52.7 kg

DRUGS (2)
  1. VENETOCLAX [Suspect]
     Active Substance: VENETOCLAX
     Indication: Precursor T-lymphoblastic lymphoma/leukaemia
     Route: 048
     Dates: start: 20210820, end: 20211006
  2. NAVITOCLAX [Suspect]
     Active Substance: NAVITOCLAX
     Indication: Precursor T-lymphoblastic lymphoma/leukaemia
     Route: 048
     Dates: start: 20210830, end: 20211006

REACTIONS (4)
  - Malignant neoplasm progression [Fatal]
  - Pulmonary haemorrhage [Fatal]
  - Therapy non-responder [Unknown]
  - Off label use [Unknown]

NARRATIVE: CASE EVENT DATE: 20210101
